FAERS Safety Report 21811991 (Version 2)
Quarter: 2023Q1

REPORT INFORMATION
  Report Type: Spontaneous
  Country: US (occurrence: US)
  Receive Date: 20230103
  Receipt Date: 20230105
  Transmission Date: 20230418
  Serious: No
  Sender: FDA-Public Use
  Company Number: US-SANOFI-01424862

PATIENT
  Age: 87 Year
  Sex: Male

DRUGS (3)
  1. DUPIXENT [Suspect]
     Active Substance: DUPILUMAB
     Indication: Transient acantholytic dermatosis
     Dosage: 300 MG, QOW
     Route: 065
     Dates: start: 20221201
  2. VYNDAMAX [Concomitant]
     Active Substance: TAFAMIDIS
  3. IRON [Concomitant]
     Active Substance: IRON
     Dosage: UNK

REACTIONS (2)
  - Therapeutic response unexpected [Unknown]
  - Product use in unapproved indication [Unknown]

NARRATIVE: CASE EVENT DATE: 20221201
